FAERS Safety Report 7653525-X (Version None)
Quarter: 2011Q3

REPORT INFORMATION
  Report Type: 
  Country: None (occurrence: None)
  Receive Date: 20110803
  Receipt Date: 20110727
  Transmission Date: 20111222
  Serious: Yes (Death, Other)
  Sender: FDA-Public Use
  Company Number: US-BAYER-200934539NA

PATIENT
  Age: 61 Year
  Sex: Male

DRUGS (12)
  1. TRASYLOL [Suspect]
     Indication: CORONARY ARTERY BYPASS
     Dosage: 500CC TOTAL
     Route: 042
     Dates: start: 20010620, end: 20010620
  2. GLUCOVANCE [Concomitant]
     Indication: TYPE 2 DIABETES MELLITUS
     Dosage: 500 MG
     Route: 048
  3. ENALAPRIL MALEATE [Concomitant]
     Indication: HYPERTENSION
     Dosage: 20 MG
     Route: 048
  4. METOPROLOL TARTRATE [Concomitant]
     Indication: HYPERTENSION
     Dosage: 50 MG
     Route: 048
  5. HEPARIN [Concomitant]
     Dosage: UNK
     Route: 042
     Dates: start: 20010620
  6. DOPAMINE HCL [Concomitant]
     Route: 042
  7. DOBUTREX [Concomitant]
     Route: 042
  8. ZOCOR [Concomitant]
     Indication: BLOOD CHOLESTEROL INCREASED
     Dosage: 10 MG
     Route: 048
  9. PROTAMINE [Concomitant]
     Dosage: UNK
     Route: 042
     Dates: start: 20010620
  10. NIPRIDE [Concomitant]
     Route: 042
  11. CEFAZOLIN [Concomitant]
     Dosage: 1 GRAM
     Route: 042
     Dates: start: 20010620
  12. NORVASC [Concomitant]
     Indication: HYPERTENSION
     Dosage: 10 MG
     Route: 048

REACTIONS (13)
  - STRESS [None]
  - PAIN [None]
  - FEAR [None]
  - MULTI-ORGAN FAILURE [None]
  - RENAL FAILURE [None]
  - RENAL IMPAIRMENT [None]
  - RENAL INJURY [None]
  - ANXIETY [None]
  - ANHEDONIA [None]
  - INJURY [None]
  - DEATH [None]
  - EMOTIONAL DISTRESS [None]
  - UNEVALUABLE EVENT [None]
